FAERS Safety Report 16702266 (Version 1)
Quarter: 2019Q3

REPORT INFORMATION
  Report Type: Report from Study
  Country: JP (occurrence: JP)
  Receive Date: 20190814
  Receipt Date: 20190814
  Transmission Date: 20191004
  Serious: Yes (Other)
  Sender: FDA-Public Use
  Company Number: JP-ACTELION-A-CH2016-133400

PATIENT
  Age: 12 Year
  Sex: Male

DRUGS (14)
  1. TREPROSTINIL. [Suspect]
     Active Substance: TREPROSTINIL
     Indication: PULMONARY ARTERIAL HYPERTENSION
     Route: 042
  2. TRACLEER [Concomitant]
     Active Substance: BOSENTAN
     Indication: PULMONARY ARTERIAL HYPERTENSION
  3. EPOPROSTENOL ACT [Suspect]
     Active Substance: EPOPROSTENOL
     Dosage: 0.5 NG/KG, PER MIN
     Route: 042
     Dates: start: 20141121, end: 20141209
  4. EPOPROSTENOL ACT [Suspect]
     Active Substance: EPOPROSTENOL
     Dosage: 30 NG/KG, PER MIN
     Route: 042
     Dates: start: 20150530, end: 20150619
  5. EPOPROSTENOL ACT [Suspect]
     Active Substance: EPOPROSTENOL
     Dosage: 37 NG/KG, PER MIN
     Route: 042
     Dates: start: 20150718, end: 20150811
  6. EPOPROSTENOL ACT [Suspect]
     Active Substance: EPOPROSTENOL
     Dosage: 33 NG/KG, PER MIN
     Route: 042
     Dates: start: 20150620, end: 20150717
  7. TREPROSTINIL. [Suspect]
     Active Substance: TREPROSTINIL
     Dosage: 141 NG/KG, PER MIN
     Route: 042
  8. FERROUS CITRATE [Concomitant]
     Active Substance: FERROUS CITRATE
  9. OXYGEN. [Concomitant]
     Active Substance: OXYGEN
  10. EPOPROSTENOL ACT [Suspect]
     Active Substance: EPOPROSTENOL
     Indication: PULMONARY ARTERIAL HYPERTENSION
     Dosage: 40 NG/KG, PER MIN
     Route: 042
     Dates: start: 20150812
  11. TADALAFIL. [Concomitant]
     Active Substance: TADALAFIL
  12. BERAPROST SODIUM [Concomitant]
     Active Substance: BERAPROST SODIUM
  13. EPOPROSTENOL ACT [Suspect]
     Active Substance: EPOPROSTENOL
     Dosage: 6 NG/KG, PER MIN
     Route: 042
     Dates: start: 20141210, end: 20150507
  14. EPOPROSTENOL ACT [Suspect]
     Active Substance: EPOPROSTENOL
     Dosage: 26 NG/KG, PER MIN
     Route: 042
     Dates: start: 20150508, end: 20150529

REACTIONS (10)
  - Catheter placement [Unknown]
  - Pyrexia [Unknown]
  - Klebsiella infection [Unknown]
  - Device related thrombosis [Recovered/Resolved]
  - Device related infection [Unknown]
  - Catheter removal [Unknown]
  - Platelet count decreased [Recovered/Resolved]
  - Bacteraemia [Unknown]
  - Transplant evaluation [Not Recovered/Not Resolved]
  - Colitis [Unknown]

NARRATIVE: CASE EVENT DATE: 20150812
